FAERS Safety Report 24719333 (Version 1)
Quarter: 2024Q4

REPORT INFORMATION
  Report Type: Spontaneous
  Country: US (occurrence: US)
  Receive Date: 20241210
  Receipt Date: 20241210
  Transmission Date: 20250115
  Serious: Yes (Hospitalization)
  Sender: STRIDES
  Company Number: US-STRIDES ARCOLAB LIMITED-2024SP016343

PATIENT
  Age: 74 Year
  Sex: Male

DRUGS (5)
  1. SEVELAMER CARBONATE [Suspect]
     Active Substance: SEVELAMER CARBONATE
     Indication: Calciphylaxis
     Dosage: UNK
     Route: 065
  2. ZOLEDRONIC ACID [Suspect]
     Active Substance: ZOLEDRONIC ACID
     Indication: Calciphylaxis
     Dosage: UNK
     Route: 065
  3. PEMIGATINIB [Concomitant]
     Active Substance: PEMIGATINIB
     Indication: Chloroma
     Dosage: UNK
     Route: 065
  4. PEMIGATINIB [Concomitant]
     Active Substance: PEMIGATINIB
     Indication: Primary myelofibrosis
  5. PEMIGATINIB [Concomitant]
     Active Substance: PEMIGATINIB
     Indication: B-cell type acute leukaemia

REACTIONS (2)
  - Condition aggravated [Unknown]
  - Drug ineffective for unapproved indication [Unknown]
